FAERS Safety Report 4556833-4 (Version None)
Quarter: 2005Q1

REPORT INFORMATION
  Report Type: 
  Country: None (occurrence: None)
  Receive Date: 20050118
  Receipt Date: 20050105
  Transmission Date: 20050727
  Serious: Yes (Other)
  Sender: FDA-Public Use
  Company Number: USA-2005-0018344

PATIENT
  Age: 33 Year
  Sex: Female

DRUGS (3)
  1. SPECTRACEF [Suspect]
     Dosage: 200 MG, BID
  2. NEURONTIN [Concomitant]
  3. NSAIDS [Concomitant]

REACTIONS (1)
  - PLATELET COUNT DECREASED [None]
